FAERS Safety Report 20223812 (Version 1)
Quarter: 2021Q4

REPORT INFORMATION
  Report Type: Spontaneous
  Country: CH (occurrence: None)
  Receive Date: 20211223
  Receipt Date: 20211223
  Transmission Date: 20220303
  Serious: Yes (Other)
  Sender: FDA-Public Use
  Company Number: CH-ROCHE-2983736

PATIENT
  Age: 70 Year
  Sex: Female

DRUGS (2)
  1. VALGANCICLOVIR HYDROCHLORIDE [Suspect]
     Active Substance: VALGANCICLOVIR HYDROCHLORIDE
     Indication: Antiviral prophylaxis
     Route: 065
     Dates: start: 20211015
  2. LETERMOVIR [Concomitant]
     Active Substance: LETERMOVIR
     Route: 065

REACTIONS (3)
  - Agranulocytosis [Unknown]
  - Immunosuppression [Unknown]
  - Transplant rejection [Unknown]

NARRATIVE: CASE EVENT DATE: 20211216
